FAERS Safety Report 5701544-2 (Version None)
Quarter: 2008Q2

REPORT INFORMATION
  Report Type: 
  Country: None (occurrence: None)
  Receive Date: 20080408
  Receipt Date: 20080327
  Transmission Date: 20081010
  Serious: Yes (Hospitalization)
  Sender: FDA-Public Use
  Company Number: 2008BI005294

PATIENT
  Age: 69 Year
  Sex: Female

DRUGS (2)
  1. AVONEX [Suspect]
     Indication: MYELITIS TRANSVERSE
     Dosage: 30 UG; QW; IM
     Route: 030
     Dates: start: 20070801, end: 20071226
  2. PREDNISONE [Concomitant]

REACTIONS (2)
  - ALLERGIC GRANULOMATOUS ANGIITIS [None]
  - CELLULITIS [None]
